FAERS Safety Report 13055678 (Version 1)
Quarter: 2016Q4

REPORT INFORMATION
  Report Type: Spontaneous
  Country: US (occurrence: US)
  Receive Date: 20161222
  Receipt Date: 20161222
  Transmission Date: 20170207
  Serious: Yes (Hospitalization)
  Sender: FDA-Public Use
  Company Number: US-BAYER-2016-235901

PATIENT
  Age: 75 Year
  Sex: Female
  Weight: 75.74 kg

DRUGS (10)
  1. ALEVE [Suspect]
     Active Substance: NAPROXEN SODIUM
     Indication: BACK PAIN
     Dosage: 1 DF, BID
     Route: 048
     Dates: start: 2013, end: 2015
  2. BABY ASPIRIN [Concomitant]
     Active Substance: ASPIRIN
     Indication: ISCHAEMIC HEART DISEASE PROPHYLAXIS
     Dosage: 81 MG, QD
  3. HYDROCHLOROTHIAZIDE. [Concomitant]
     Active Substance: HYDROCHLOROTHIAZIDE
     Dosage: 80-12.5 MG
  4. CARVEDILOL. [Concomitant]
     Active Substance: CARVEDILOL
  5. VITAMIN C [Concomitant]
     Active Substance: ASCORBIC ACID
  6. MULTIVITAMIN [Concomitant]
     Active Substance: VITAMINS
  7. ALEVE [Suspect]
     Active Substance: NAPROXEN SODIUM
     Indication: ARTHRALGIA
  8. VITAMIN B12 [Concomitant]
     Active Substance: CYANOCOBALAMIN
  9. VITAMIN D3 [Concomitant]
     Active Substance: CHOLECALCIFEROL
  10. BAYER ASPIRIN [Suspect]
     Active Substance: ASPIRIN
     Indication: MYOCARDIAL INFARCTION
     Dosage: 1 DF, ONCE
     Route: 048
     Dates: start: 20151218, end: 20151218

REACTIONS (6)
  - Chills [Unknown]
  - Wrong technique in product usage process [Unknown]
  - Hypertension [Unknown]
  - Incorrect drug administration duration [Unknown]
  - Myocardial infarction [Unknown]
  - Dyspepsia [Unknown]

NARRATIVE: CASE EVENT DATE: 2013
